FAERS Safety Report 21851159 (Version 1)
Quarter: 2023Q1

REPORT INFORMATION
  Report Type: Spontaneous
  Country: CA (occurrence: CA)
  Receive Date: 20230112
  Receipt Date: 20230112
  Transmission Date: 20230418
  Serious: Yes (Hospitalization, Other)
  Sender: FDA-Public Use
  Company Number: CA-TEVA-2023-CA-2844657

PATIENT
  Age: 79 Year
  Sex: Female
  Weight: 68 kg

DRUGS (7)
  1. SILDENAFIL CITRATE [Suspect]
     Active Substance: SILDENAFIL CITRATE
     Indication: Pulmonary arterial hypertension
     Dosage: 60 MILLIGRAM DAILY;
     Route: 048
  2. BETACAROTENE/ BIOTIN/CALCIUM CARBONATE/CALCIUM DPANTOTHENATE/ CHROMIUM [Concomitant]
     Indication: Product used for unknown indication
  3. CALCIUM [Concomitant]
     Active Substance: CALCIUM
     Indication: Product used for unknown indication
  4. COUMADIN [Concomitant]
     Active Substance: WARFARIN SODIUM
     Indication: Product used for unknown indication
  5. MACITENTAN [Concomitant]
     Active Substance: MACITENTAN
     Indication: Product used for unknown indication
  6. OXYGEN [Concomitant]
     Active Substance: OXYGEN
     Indication: Product used for unknown indication
  7. VITAMIN D [Concomitant]
     Active Substance: VITAMIN D NOS
     Indication: Product used for unknown indication

REACTIONS (3)
  - Arthralgia [Unknown]
  - Arthritis [Unknown]
  - Dizziness [Unknown]
